FAERS Safety Report 7577872-5 (Version None)
Quarter: 2011Q2

REPORT INFORMATION
  Report Type: 
  Country: None (occurrence: None)
  Receive Date: 20110628
  Receipt Date: 20110617
  Transmission Date: 20111010
  Serious: Yes (Hospitalization)
  Sender: FDA-Public Use
  Company Number: PHHY2011JP54498

PATIENT

DRUGS (1)
  1. VOLTAREN [Suspect]
     Indication: PYREXIA
     Dosage: UNK UKN, UNK
     Route: 048
     Dates: start: 20110601

REACTIONS (2)
  - ALTERED STATE OF CONSCIOUSNESS [None]
  - RESTLESSNESS [None]
